FAERS Safety Report 5652328-5 (Version None)
Quarter: 2008Q1

REPORT INFORMATION
  Report Type: 
  Country: None (occurrence: None)
  Receive Date: 20080305
  Receipt Date: 20080305
  Transmission Date: 20080703
  Serious: Yes (Death)
  Sender: FDA-Public Use
  Company Number: None

PATIENT
  Sex: Male
  Weight: 110.6777 kg

DRUGS (7)
  1. QUETIAPINE FUMARATE [Suspect]
     Indication: SCHIZOPHRENIA
     Dosage: 300MG 1 TAB PO BID PO
     Route: 048
     Dates: start: 20071031, end: 20080220
  2. RISPERIDONE [Suspect]
     Dosage: 3MG 1 TAB PO BID
     Route: 048
     Dates: start: 20071031, end: 20080220
  3. DEPAKOTE [Concomitant]
  4. KLONOPIN [Concomitant]
  5. COGENTIN [Concomitant]
  6. LOSARTAN POTASSIUM [Concomitant]
  7. HYDROCHLOROTHIAZIDE [Concomitant]

REACTIONS (6)
  - BLOOD CREATINE PHOSPHOKINASE INCREASED [None]
  - HYPERGLYCAEMIA [None]
  - HYPEROSMOLAR STATE [None]
  - MENTAL STATUS CHANGES [None]
  - MULTI-ORGAN FAILURE [None]
  - NEUROLEPTIC MALIGNANT SYNDROME [None]
